FAERS Safety Report 16328999 (Version 1)
Quarter: 2019Q2

REPORT INFORMATION
  Report Type: Spontaneous
  Country: US (occurrence: US)
  Receive Date: 20190519
  Receipt Date: 20190519
  Transmission Date: 20190711
  Serious: No
  Sender: FDA-Public Use
  Company Number: US-CONCORDIA PHARMACEUTICALS INC.-GSH201808-002913

PATIENT
  Sex: Female

DRUGS (1)
  1. HYDROXYCHLOROQUINE [Suspect]
     Active Substance: HYDROXYCHLOROQUINE
     Dosage: (TOOK 1 TABLET) ON FRIDAY,
     Dates: start: 20180803

REACTIONS (2)
  - Abdominal pain upper [Unknown]
  - Panic attack [Unknown]

NARRATIVE: CASE EVENT DATE: 20180804
